FAERS Safety Report 9034463 (Version 1)
Quarter: 2013Q1

REPORT INFORMATION
  Report Type: Spontaneous
  Country: GB (occurrence: None)
  Receive Date: 20130114
  Receipt Date: 20130114
  Transmission Date: 20140127
  Serious: Yes (Life-Threatening)
  Sender: FDA-Public Use
  Company Number: AUR-APL-2013-00059

PATIENT
  Age: 66 Year
  Sex: Female
  Weight: 104 kg

DRUGS (6)
  1. SIMVASTATIN (SIMVASTATIN) [Suspect]
     Indication: PRODUCT USED FOR UNKNOWN INDICATION
     Route: 048
     Dates: start: 2004, end: 20120917
  2. CANDESARTAN (CANDESARTAN) [Concomitant]
     Indication: PRODUCT USED FOR UNKNOWN INDICATION
  3. ETODOLAC (ETODOLAC) [Concomitant]
     Indication: PRODUCT USED FOR UNKNOWN INDICATION
  4. FEXOFENADINE [Concomitant]
     Indication: PRODUCT USED FOR UNKNOWN INDICATION
  5. LANSOPRAZOLE (LANSOPRAZOLE) [Concomitant]
     Indication: PRODUCT USED FOR UNKNOWN INDICATION
  6. METFORMIN (METFORMIN) [Concomitant]
     Indication: PRODUCT USED FOR UNKNOWN INDICATION

REACTIONS (11)
  - Flatulence [None]
  - Dyshidrotic eczema [None]
  - Dyspepsia [None]
  - Arthralgia [None]
  - Muscular weakness [None]
  - Neuropathy peripheral [None]
  - Local swelling [None]
  - Cardiomyopathy [None]
  - Dysstasia [None]
  - Mobility decreased [None]
  - Dyspnoea [None]
